FAERS Safety Report 9124159 (Version 1)
Quarter: 2013Q1

REPORT INFORMATION
  Report Type: Spontaneous
  Country: US (occurrence: US)
  Receive Date: 20130116
  Receipt Date: 20130116
  Transmission Date: 20140127
  Serious: No
  Sender: FDA-Public Use
  Company Number: US-PFIZER INC-2013016245

PATIENT
  Sex: 0

DRUGS (1)
  1. CORTISONE ACETATE [Suspect]
     Indication: MORTON^S NEUROMA
     Dosage: 2 SHOTS

REACTIONS (3)
  - Drug administration error [Unknown]
  - Drug ineffective for unapproved indication [Unknown]
  - Pain [Unknown]
